FAERS Safety Report 9530859 (Version 1)
Quarter: 2013Q3

REPORT INFORMATION
  Report Type: Spontaneous
  Country: US (occurrence: None)
  Receive Date: 20130916
  Receipt Date: 20130916
  Transmission Date: 20140515
  Serious: Yes (Hospitalization)
  Sender: FDA-Public Use
  Company Number: None

PATIENT
  Age: 27 Year
  Sex: Female
  Weight: 76 kg

DRUGS (2)
  1. TEMOZOLOMIDE [Suspect]
     Dosage: RADIOTHERAPY AND CONCURRENT TMZ PLUS ADJUVANT TMZ FOR 12 CYCLES
  2. DAPSONE [Concomitant]

REACTIONS (6)
  - Pseudomonas infection [None]
  - Pharyngitis [None]
  - Appendicitis [None]
  - Pneumonia aspiration [None]
  - Post procedural complication [None]
  - Actinomycosis [None]
